FAERS Safety Report 6101785-9 (Version None)
Quarter: 2009Q1

REPORT INFORMATION
  Report Type: 
  Country: None (occurrence: None)
  Receive Date: 20090303
  Receipt Date: 20090303
  Transmission Date: 20090719
  Serious: Yes (Other)
  Sender: FDA-Public Use
  Company Number: None

PATIENT
  Sex: Male
  Weight: 117.9352 kg

DRUGS (1)
  1. TUSSICAPS [Suspect]
     Indication: COUGH
     Dosage: 1 CAP TWICE DAILY AS NEE PO
     Route: 048
     Dates: start: 20090226, end: 20090226

REACTIONS (1)
  - LOSS OF CONSCIOUSNESS [None]
